FAERS Safety Report 18985662 (Version 1)
Quarter: 2021Q1

REPORT INFORMATION
  Report Type: Spontaneous
  Country: GB (occurrence: GB)
  Receive Date: 20210309
  Receipt Date: 20210309
  Transmission Date: 20210420
  Serious: Yes (Other)
  Sender: FDA-Public Use
  Company Number: GB-PFIZER INC-2021215806

PATIENT
  Age: 61 Year
  Sex: Female
  Weight: 64.86 kg

DRUGS (3)
  1. SULFASALAZINE. [Suspect]
     Active Substance: SULFASALAZINE
     Dosage: 2000 MG
     Route: 048
     Dates: start: 20210122, end: 20210223
  2. HYDROXYCHLOROQUINE SULPHATE [Concomitant]
     Active Substance: HYDROXYCHLOROQUINE
  3. SULFASALAZINE. [Suspect]
     Active Substance: SULFASALAZINE
     Dosage: 2000 MG
     Route: 048
     Dates: start: 20210122, end: 20210223

REACTIONS (1)
  - Depression suicidal [Recovering/Resolving]

NARRATIVE: CASE EVENT DATE: 20210207
